FAERS Safety Report 23679015 (Version 2)
Quarter: 2024Q1

REPORT INFORMATION
  Report Type: Spontaneous
  Country: US (occurrence: US)
  Receive Date: 20240327
  Receipt Date: 20240329
  Transmission Date: 20240410
  Serious: Yes (Other)
  Sender: FDA-Public Use
  Company Number: US-SANOFI-01987029

PATIENT
  Age: 61 Year
  Sex: Female

DRUGS (3)
  1. LANTUS SOLOSTAR [Suspect]
     Active Substance: INSULIN GLARGINE
     Indication: Type 1 diabetes mellitus
     Dosage: 35 IU, QD
  2. HUMALOG [Concomitant]
     Active Substance: INSULIN LISPRO
  3. JARDIANCE [Concomitant]
     Active Substance: EMPAGLIFLOZIN
     Indication: Glycosylated haemoglobin increased
     Dosage: 25 MG

REACTIONS (6)
  - Diabetes mellitus inadequate control [Unknown]
  - Product storage error [Unknown]
  - Therapeutic response decreased [Unknown]
  - Blood glucose decreased [Unknown]
  - Glycosylated haemoglobin increased [Unknown]
  - Blood glucose increased [Unknown]
